FAERS Safety Report 7020343-5 (Version None)
Quarter: 2010Q3

REPORT INFORMATION
  Report Type: 
  Country: None (occurrence: None)
  Receive Date: 20100922
  Receipt Date: 20100908
  Transmission Date: 20110219
  Serious: Yes (Hospitalization, Other)
  Sender: FDA-Public Use
  Company Number: 014408

PATIENT
  Sex: Female
  Weight: 95 kg

DRUGS (11)
  1. LACOSAMIDE [Suspect]
     Indication: DIABETIC NEUROPATHY
     Dosage: 150 MG BID ORAL
     Route: 048
     Dates: start: 20041006
  2. LACOSAMIDE [Suspect]
  3. LACOSAMIDE [Suspect]
  4. LACOSAMIDE [Suspect]
  5. ASPIRIN [Concomitant]
  6. DIABETASE [Concomitant]
  7. LEVOTHYROXINE SODIUM [Concomitant]
  8. BLOPRESS PLUS [Concomitant]
  9. ACTOS [Concomitant]
  10. SIMVASTATIN [Concomitant]
  11. ATACAND [Concomitant]

REACTIONS (15)
  - ACUTE MYOCARDIAL INFARCTION [None]
  - AKINESIA [None]
  - AORTIC VALVE INCOMPETENCE [None]
  - AORTIC VALVE SCLEROSIS [None]
  - CORONARY ARTERY DISEASE [None]
  - CORONARY ARTERY STENOSIS [None]
  - DIASTOLIC DYSFUNCTION [None]
  - HYPERTENSION [None]
  - HYPOTHYROIDISM [None]
  - MITRAL VALVE INCOMPETENCE [None]
  - MITRAL VALVE SCLEROSIS [None]
  - PULMONARY HYPERTENSION [None]
  - SUPRAVENTRICULAR EXTRASYSTOLES [None]
  - TRICUSPID VALVE INCOMPETENCE [None]
  - VENTRICULAR HYPOKINESIA [None]
